FAERS Safety Report 7207682-X (Version None)
Quarter: 2011Q1

REPORT INFORMATION
  Report Type: 
  Country: None (occurrence: None)
  Receive Date: 20110103
  Receipt Date: 20101224
  Transmission Date: 20110831
  Serious: Yes (Life-Threatening)
  Sender: FDA-Public Use
  Company Number: JP-ABBOTT-10P-087-0693530-00

PATIENT
  Sex: Female
  Weight: 60 kg

DRUGS (6)
  1. OXYTOCIN [Concomitant]
     Indication: UTERINE CONTRACTIONS ABNORMAL
     Route: 042
     Dates: start: 20100417, end: 20100417
  2. DINOPROST [Concomitant]
     Indication: UTERINE CONTRACTIONS ABNORMAL
     Route: 042
     Dates: start: 20100417, end: 20100417
  3. SEVOFLURANE [Suspect]
     Indication: GENERAL ANAESTHESIA
     Dosage: 1 - 2 %
     Route: 055
     Dates: start: 20100417, end: 20100417
  4. ROCURONIUM BROMIDE [Concomitant]
     Indication: INDUCTION OF ANAESTHESIA
     Route: 042
     Dates: start: 20100417, end: 20100417
  5. FENTANYL [Concomitant]
     Indication: ANALGESIC THERAPY
     Route: 042
     Dates: start: 20100417, end: 20100417
  6. PROPOFOL [Concomitant]
     Indication: INDUCTION OF ANAESTHESIA
     Route: 042
     Dates: start: 20100417, end: 20100417

REACTIONS (2)
  - URTICARIA [None]
  - TRANSFUSION-RELATED ACUTE LUNG INJURY [None]
